FAERS Safety Report 20542752 (Version 1)
Quarter: 2022Q1

REPORT INFORMATION
  Report Type: Report from Study
  Country: US (occurrence: US)
  Receive Date: 20220302
  Receipt Date: 20220302
  Transmission Date: 20220423
  Serious: Yes (Other)
  Sender: FDA-Public Use
  Company Number: US-GILEAD-2022-0570600

PATIENT
  Age: 52 Year
  Sex: Female

DRUGS (44)
  1. SOFOSBUVIR\VELPATASVIR [Suspect]
     Active Substance: SOFOSBUVIR\VELPATASVIR
     Indication: Product used for unknown indication
     Dosage: 500 MG, QD
     Route: 065
     Dates: start: 20180222, end: 20180516
  2. ACETAMINOPHEN [Concomitant]
     Active Substance: ACETAMINOPHEN
  3. ALENDRONATE [Concomitant]
     Active Substance: ALENDRONATE SODIUM
  4. AMLODIPINE [Concomitant]
     Active Substance: AMLODIPINE BESYLATE
  5. AZITHROMYCIN [Concomitant]
     Active Substance: AZITHROMYCIN
  6. CALCIUM CARBONATE [Concomitant]
     Active Substance: CALCIUM CARBONATE
  7. AMOXICILLIN\CLAVULANIC ACID [Concomitant]
     Active Substance: AMOXICILLIN\CLAVULANIC ACID
  8. CLOXACILLIN [Concomitant]
     Active Substance: CLOXACILLIN
  9. CYCLOSPORINE [Concomitant]
     Active Substance: CYCLOSPORINE
  10. DIMENHYDRINATE [Concomitant]
     Active Substance: DIMENHYDRINATE
  11. DOCUSATE [Concomitant]
     Active Substance: DOCUSATE
  12. DOMPERIDONE [Concomitant]
     Active Substance: DOMPERIDONE
  13. FERROUS FUMARATE [Concomitant]
     Active Substance: FERROUS FUMARATE
  14. FUROSEMIDE [Concomitant]
     Active Substance: FUROSEMIDE
  15. HEPARIN [Concomitant]
     Active Substance: HEPARIN SODIUM
  16. HYCODAN [HOMATROPINE METHYLBROMIDE;HYDROCODONE BITARTRATE] [Concomitant]
  17. HYDROMORPHONE [Concomitant]
     Active Substance: HYDROMORPHONE
  18. HUMAN IMMUNOGLOBULIN G [Concomitant]
     Active Substance: HUMAN IMMUNOGLOBULIN G
  19. IPRATROPIUM [Concomitant]
     Active Substance: IPRATROPIUM
  20. POLYETHYLENE GLYCOL 3350 [Concomitant]
     Active Substance: POLYETHYLENE GLYCOL 3350
  21. LORAZEPAM [Concomitant]
     Active Substance: LORAZEPAM
  22. MAGNESIUM [Concomitant]
     Active Substance: MAGNESIUM
  23. MELATONIN [Concomitant]
     Active Substance: MELATONIN
  24. MORPHINE [Concomitant]
     Active Substance: MORPHINE
  25. MYFORTIC [Concomitant]
     Active Substance: MYCOPHENOLATE SODIUM
  26. NYSTATIN [Concomitant]
     Active Substance: NYSTATIN
  27. ONDANSETRON [Concomitant]
     Active Substance: ONDANSETRON
  28. PANTOPRAZOLE [Concomitant]
     Active Substance: PANTOPRAZOLE
  29. PLASMA-PLEX [Concomitant]
     Active Substance: PLASMA PROTEIN FRACTION (HUMAN)
  30. PREDNISONE [Concomitant]
     Active Substance: PREDNISONE
  31. PREGABALIN [Concomitant]
     Active Substance: PREGABALIN
  32. PROBIOTICS NOS [Concomitant]
     Active Substance: PROBIOTICS NOS
  33. RECOMBIVAX [Concomitant]
  34. ALBUTEROL [Concomitant]
     Active Substance: ALBUTEROL
  35. SENNA [Concomitant]
     Active Substance: SENNA LEAF\SENNOSIDES\SENNOSIDES A AND B
  36. SEPTRA [Concomitant]
     Active Substance: SULFAMETHOXAZOLE\TRIMETHOPRIM
  37. SPIRIVA [Concomitant]
     Active Substance: TIOTROPIUM BROMIDE MONOHYDRATE
  38. SYMBICORT [Concomitant]
     Active Substance: BUDESONIDE\FORMOTEROL FUMARATE DIHYDRATE
  39. PIPERACILLIN SODIUM\TAZOBACTAM SODIUM [Concomitant]
     Active Substance: PIPERACILLIN SODIUM\TAZOBACTAM SODIUM
  40. THYMOGLOBULIN [Concomitant]
     Active Substance: LAPINE T-LYMPHOCYTE IMMUNE GLOBULIN
  41. TRAZODONE [Concomitant]
     Active Substance: TRAZODONE HYDROCHLORIDE
  42. VALGANCICLOVIR [Concomitant]
     Active Substance: VALGANCICLOVIR
  43. VENTOLIN [Concomitant]
     Active Substance: ALBUTEROL SULFATE
  44. VITAMIN D NOS [Concomitant]
     Active Substance: VITAMIN D NOS

REACTIONS (6)
  - Transplant rejection [Unknown]
  - Transplant dysfunction [Unknown]
  - Leukopenia [Unknown]
  - Oedema peripheral [Unknown]
  - Dyspnoea [Unknown]
  - Cough [Unknown]

NARRATIVE: CASE EVENT DATE: 20180222
